FAERS Safety Report 24209681 (Version 3)
Quarter: 2025Q1

REPORT INFORMATION
  Report Type: Spontaneous
  Country: CA (occurrence: CA)
  Receive Date: 20240814
  Receipt Date: 20250208
  Transmission Date: 20250408
  Serious: Yes (Death, Hospitalization, Other)
  Sender: AUROBINDO
  Company Number: CA-AUROBINDO-AUR-APL-2024-040220

PATIENT
  Age: 86 Year
  Sex: Male

DRUGS (8)
  1. APIXABAN [Suspect]
     Active Substance: APIXABAN
     Indication: Atrial fibrillation
     Route: 048
  2. APIXABAN [Suspect]
     Active Substance: APIXABAN
     Indication: Anticoagulant therapy
  3. CLOPIDOGREL [Suspect]
     Active Substance: CLOPIDOGREL BISULFATE
     Indication: Atrial fibrillation
     Dosage: 75 MILLIGRAM, ONCE A DAY
     Route: 065
  4. CLOPIDOGREL [Suspect]
     Active Substance: CLOPIDOGREL BISULFATE
     Indication: Antiplatelet therapy
     Route: 065
  5. ASPIRIN [Suspect]
     Active Substance: ASPIRIN
     Indication: Atrial fibrillation
     Dosage: 81 MILLIGRAM, ONCE A DAY
     Route: 065
  6. ASPIRIN [Suspect]
     Active Substance: ASPIRIN
     Indication: Antiplatelet therapy
     Route: 065
  7. ASPIRIN [Suspect]
     Active Substance: ASPIRIN
     Indication: Antiplatelet therapy
     Route: 065
  8. RIVAROXABAN [Suspect]
     Active Substance: RIVAROXABAN
     Indication: Anticoagulant therapy
     Dosage: 15 MILLIGRAM, ONCE A DAY
     Route: 065

REACTIONS (8)
  - Gastrointestinal haemorrhage [Fatal]
  - Haemoglobin decreased [Fatal]
  - Haematochezia [Fatal]
  - Melaena [Fatal]
  - Occult blood positive [Unknown]
  - Contusion [Unknown]
  - Epistaxis [Unknown]
  - Fall [Unknown]
